FAERS Safety Report 13053761 (Version 1)
Quarter: 2016Q4

REPORT INFORMATION
  Report Type: Spontaneous
  Country: GB (occurrence: GB)
  Receive Date: 20161222
  Receipt Date: 20161222
  Transmission Date: 20170207
  Serious: Yes (Hospitalization)
  Sender: FDA-Public Use
  Company Number: GB-CONCORDIA PHARMACEUTICALS INC.-GSH201612-006414

PATIENT
  Age: 77 Year
  Sex: Female

DRUGS (13)
  1. FUROSEMIDE. [Concomitant]
     Active Substance: FUROSEMIDE
  2. PREDNISOLONE. [Suspect]
     Active Substance: PREDNISOLONE
     Indication: ARTHRALGIA
     Dosage: MAINTENANCE DOSE.
     Route: 048
     Dates: start: 20161001
  3. METFORMIN [Concomitant]
     Active Substance: METFORMIN HYDROCHLORIDE
     Indication: TYPE 2 DIABETES MELLITUS
  4. BECLOMETASONE [Concomitant]
     Active Substance: BECLOMETHASONE DIPROPIONATE
  5. GABAPENTIN. [Concomitant]
     Active Substance: GABAPENTIN
     Indication: NEURALGIA
     Dosage: 300 MG IN THE MORNING AND LUNCH AND 600 MG AT NIGHT
  6. ASPIRIN. [Concomitant]
     Active Substance: ASPIRIN
  7. RANITIDINE. [Concomitant]
     Active Substance: RANITIDINE
  8. SALBUTAMOL [Concomitant]
     Active Substance: ALBUTEROL
  9. LEVOTHYROXINE. [Concomitant]
     Active Substance: LEVOTHYROXINE
  10. NITROFURANTOIN. [Concomitant]
     Active Substance: NITROFURANTOIN
  11. SIMVASTATIN. [Concomitant]
     Active Substance: SIMVASTATIN
  12. SOLIFENACIN [Concomitant]
     Active Substance: SOLIFENACIN
  13. FORTISIP [Concomitant]
     Active Substance: CARBOHYDRATES\FATTY ACIDS\MINERALS\PROTEIN\VITAMINS

REACTIONS (2)
  - Impaired healing [Not Recovered/Not Resolved]
  - Decubitus ulcer [Not Recovered/Not Resolved]

NARRATIVE: CASE EVENT DATE: 20161001
